FAERS Safety Report 6816464-X (Version None)
Quarter: 2010Q2

REPORT INFORMATION
  Report Type: 
  Country: None (occurrence: None)
  Receive Date: 20100630
  Receipt Date: 20100622
  Transmission Date: 20101027
  Serious: No
  Sender: FDA-Public Use
  Company Number: 009848

PATIENT
  Age: 77 Year
  Sex: Male
  Weight: 58.3 kg

DRUGS (8)
  1. PLETAL [Suspect]
     Indication: CEREBRAL INFARCTION
     Dosage: 50 MG, BID, ORAL; 100 MG, BID, ORAL
     Route: 048
     Dates: start: 20100517, end: 20100523
  2. PLETAL [Suspect]
     Indication: CEREBRAL INFARCTION
     Dosage: 50 MG, BID, ORAL; 100 MG, BID, ORAL
     Route: 048
     Dates: start: 20100524
  3. AMLODIN (AMLODIPINE BESILATE) TABLET [Concomitant]
  4. PLAVIX [Concomitant]
  5. PREMINENT (LOSARTAN POTASSIUM_HYDROCHLOROTHIAZIDE) TABLET [Concomitant]
  6. DEPAS (ETIZOLAM) TABLET [Concomitant]
  7. MAGLAX (MAGNESIUM OXIDE) TABLET [Concomitant]
  8. FAMOTIDINE [Concomitant]

REACTIONS (1)
  - HYPERKALAEMIA [None]
